FAERS Safety Report 11138912 (Version 2)
Quarter: 2015Q2

REPORT INFORMATION
  Report Type: Report from Study
  Country: US (occurrence: US)
  Receive Date: 20150527
  Receipt Date: 20150612
  Transmission Date: 20150821
  Serious: Yes (Hospitalization)
  Sender: FDA-Public Use
  Company Number: US-INCYTE CORPORATION-2015IN001241

PATIENT
  Age: 71 Year
  Sex: Female
  Weight: 71.2 kg

DRUGS (4)
  1. INCB18424 (RUXOLITINIB) [Suspect]
     Active Substance: RUXOLITINIB
     Indication: COLORECTAL CANCER METASTATIC
     Dosage: 15 MG, BID
     Route: 048
     Dates: start: 20150219, end: 20150322
  2. LOSARTAN [Concomitant]
     Active Substance: LOSARTAN
     Indication: HYPERTENSION
     Dosage: 10 MG, QD
     Dates: start: 20130605, end: 20150323
  3. DICLOFENAC SODIUM. [Concomitant]
     Active Substance: DICLOFENAC SODIUM
     Indication: PAIN
     Dosage: 1 %, QD
     Dates: start: 20090918, end: 20150323
  4. REGORAFENIB [Suspect]
     Active Substance: REGORAFENIB
     Dosage: 160 MG, QD
     Route: 048
     Dates: start: 20150219

REACTIONS (8)
  - Blood bilirubin increased [Not Recovered/Not Resolved]
  - Back pain [Recovered/Resolved]
  - Cholangitis [Not Recovered/Not Resolved]
  - Urinary tract infection [Recovered/Resolved]
  - Pyrexia [Recovered/Resolved]
  - Blood alkaline phosphatase increased [Not Recovered/Not Resolved]
  - Aspartate aminotransferase increased [Not Recovered/Not Resolved]
  - Acute kidney injury [Not Recovered/Not Resolved]

NARRATIVE: CASE EVENT DATE: 20150322
